FAERS Safety Report 9502779 (Version 2)
Quarter: 2013Q4

REPORT INFORMATION
  Report Type: Report from Study
  Country: CA (occurrence: CA)
  Receive Date: 20130906
  Receipt Date: 20131220
  Transmission Date: 20140711
  Serious: Yes (Hospitalization)
  Sender: FDA-Public Use
  Company Number: CA-JNJFOC-20130901121

PATIENT
  Age: 24 Year
  Sex: Female
  Weight: 60 kg

DRUGS (9)
  1. REMICADE [Suspect]
     Indication: CROHN^S DISEASE
     Route: 042
     Dates: start: 20130901
  2. REMICADE [Suspect]
     Indication: CROHN^S DISEASE
     Route: 042
     Dates: start: 20130829
  3. REMICADE [Suspect]
     Indication: CROHN^S DISEASE
     Route: 042
     Dates: start: 201209
  4. IMURAN [Concomitant]
     Indication: CROHN^S DISEASE
     Dosage: 2.5 TABLETS
     Route: 065
  5. PREVACID [Concomitant]
     Indication: ANTACID THERAPY
     Route: 065
  6. PREVACID [Concomitant]
     Indication: CROHN^S DISEASE
     Route: 065
  7. TYLENOL 3 [Concomitant]
     Indication: CROHN^S DISEASE
     Route: 065
  8. BENADRYL [Concomitant]
     Indication: PREMEDICATION
     Route: 042
     Dates: start: 20130829
  9. SOLU CORTEF [Concomitant]
     Indication: PREMEDICATION
     Route: 042
     Dates: start: 20130829

REACTIONS (2)
  - Crohn^s disease [Recovered/Resolved]
  - Ureteral disorder [Recovered/Resolved]
